FAERS Safety Report 22765341 (Version 2)
Quarter: 2023Q4

REPORT INFORMATION
  Report Type: Spontaneous
  Country: CA (occurrence: CA)
  Receive Date: 20230731
  Receipt Date: 20231123
  Transmission Date: 20240110
  Serious: Yes (Life-Threatening, Hospitalization, Other)
  Sender: FDA-Public Use
  Company Number: CA-JNJFOC-20230758847

PATIENT
  Age: 11 Year
  Sex: Male
  Weight: 54 kg

DRUGS (10)
  1. VELCADE [Suspect]
     Active Substance: BORTEZOMIB
     Indication: Transplant
     Dosage: 2 MILLIGRAM
     Route: 042
  2. DEXAMETHASONE [Suspect]
     Active Substance: DEXAMETHASONE
     Indication: Transplant
     Dosage: 5 MILLIGRAM
     Route: 042
  3. DARATUMUMAB\HYALURONIDASE-FIHJ [Suspect]
     Active Substance: DARATUMUMAB\HYALURONIDASE-FIHJ
     Indication: Transplant
     Dosage: 800 MILLIGRAM
     Route: 042
  4. FLUCONAZOLE [Suspect]
     Active Substance: FLUCONAZOLE
     Indication: Transplant
     Dosage: 300 MILLIGRAM, QD
     Route: 048
  5. HYDROXYUREA [Suspect]
     Active Substance: HYDROXYUREA
     Indication: Transplant
     Dosage: 1500 MILLIGRAM, QD
     Route: 048
  6. HEPARIN SODIUM [Concomitant]
     Active Substance: HEPARIN SODIUM
     Dosage: UNK
     Route: 065
  7. LANSOPRAZOLE [Concomitant]
     Active Substance: LANSOPRAZOLE
     Dosage: UNK
     Route: 065
  8. SULFAMETHOXAZOLE\TRIMETHOPRIM [Concomitant]
     Active Substance: SULFAMETHOXAZOLE\TRIMETHOPRIM
     Dosage: UNK
     Route: 065
  9. VALACYCLOVIR [Concomitant]
     Active Substance: VALACYCLOVIR HYDROCHLORIDE
     Dosage: UNK
     Route: 065
  10. TRIMETHOPRIM [Concomitant]
     Active Substance: TRIMETHOPRIM
     Dosage: UNK
     Route: 065

REACTIONS (11)
  - Aplastic anaemia [Recovered/Resolved]
  - Febrile neutropenia [Recovered/Resolved]
  - Thrombocytopenia [Recovered/Resolved]
  - Pancytopenia [Recovered/Resolved]
  - Diarrhoea [Recovered/Resolved]
  - Increased viscosity of upper respiratory secretion [Recovered/Resolved]
  - Insomnia [Recovered/Resolved]
  - Abdominal pain [Recovered/Resolved]
  - Mucosal inflammation [Recovered/Resolved]
  - Pyrexia [Recovered/Resolved]
  - Off label use [Unknown]
